FAERS Safety Report 6127981-2 (Version None)
Quarter: 2009Q1

REPORT INFORMATION
  Report Type: 
  Country: None (occurrence: None)
  Receive Date: 20090323
  Receipt Date: 20090316
  Transmission Date: 20090719
  Serious: Yes (Other)
  Sender: FDA-Public Use
  Company Number: US-BAYER-200915588NA

PATIENT
  Age: 40 Year
  Sex: Male
  Weight: 102 kg

DRUGS (3)
  1. MAGNEVIST [Suspect]
     Indication: NUCLEAR MAGNETIC RESONANCE IMAGING
     Dosage: TOTAL DAILY DOSE: 20 ML  UNIT DOSE: 20 ML
     Route: 042
     Dates: start: 20090314, end: 20090314
  2. VALIUM [Concomitant]
     Indication: CLAUSTROPHOBIA
     Dates: start: 20090314, end: 20090314
  3. ^LOWER TAB^ [Concomitant]
     Indication: PAIN
     Dosage: THIS AM (14-MAR-2009)

REACTIONS (5)
  - ERYTHEMA [None]
  - NAUSEA [None]
  - OROPHARYNGEAL DISCOMFORT [None]
  - PRURITUS [None]
  - URTICARIA [None]
